FAERS Safety Report 13434522 (Version 1)
Quarter: 2017Q2

REPORT INFORMATION
  Report Type: Spontaneous
  Country: US (occurrence: US)
  Receive Date: 20170412
  Receipt Date: 20170412
  Transmission Date: 20170830
  Serious: No
  Sender: FDA-Public Use
  Company Number: US-SA-2016SA062819

PATIENT
  Age: 62 Year
  Sex: Female

DRUGS (3)
  1. LIPITOR [Concomitant]
     Active Substance: ATORVASTATIN CALCIUM
     Indication: BLOOD CHOLESTEROL INCREASED
     Dosage: SINCE MANY YEARS?TOOK AT 7:00 PM TO NIGHT
     Route: 065
  2. ALLEGRA ALLERGY [Suspect]
     Active Substance: FEXOFENADINE HYDROCHLORIDE
     Indication: SEASONAL ALLERGY
     Dosage: SHE WILL NOT TAKE ALLEGRA TODAY 24MAR2016 BUT WILL WAIT TO TAKE ALLEGRA ALLERGY TOMORROW 25MAR2016
     Route: 048
     Dates: start: 20160323
  3. PEPCID [Concomitant]
     Active Substance: FAMOTIDINE
     Indication: GASTROOESOPHAGEAL REFLUX DISEASE
     Dosage: SINCE MANY YEARS
     Route: 065

REACTIONS (1)
  - Therapeutic response decreased [Unknown]
